FAERS Safety Report 9266363 (Version 1)
Quarter: 2013Q2

REPORT INFORMATION
  Report Type: Spontaneous
  Country: US (occurrence: US)
  Receive Date: 20130502
  Receipt Date: 20130502
  Transmission Date: 20140414
  Serious: Yes (Hospitalization)
  Sender: FDA-Public Use
  Company Number: US-BIOGENIDEC-2013BI038709

PATIENT
  Age: 63 Year
  Sex: Female

DRUGS (1)
  1. AVONEX [Suspect]
     Indication: MULTIPLE SCLEROSIS
     Route: 030
     Dates: start: 20110117

REACTIONS (3)
  - Cerebrovascular accident [Not Recovered/Not Resolved]
  - Aphasia [Not Recovered/Not Resolved]
  - Fatigue [Not Recovered/Not Resolved]
